FAERS Safety Report 6838913-3 (Version None)
Quarter: 2010Q3

REPORT INFORMATION
  Report Type: 
  Country: None (occurrence: None)
  Receive Date: 20100713
  Receipt Date: 20070917
  Transmission Date: 20110219
  Serious: Yes (Other)
  Sender: FDA-Public Use
  Company Number: US-PFIZER INC-2007047859

PATIENT
  Sex: Female
  Weight: 81.8 kg

DRUGS (15)
  1. CHANTIX [Suspect]
     Indication: SMOKING CESSATION THERAPY
     Dates: start: 20070401
  2. HYDROXYZINE [Concomitant]
     Indication: URTICARIA
  3. LIPITOR [Concomitant]
  4. FUROSEMIDE [Concomitant]
  5. COREG [Concomitant]
  6. PLAVIX [Concomitant]
  7. LISINOPRIL [Concomitant]
  8. AMIODARONE HCL [Concomitant]
  9. ACETYLSALICYLIC ACID [Concomitant]
  10. DIGITEK [Concomitant]
  11. OMEPRAZOLE [Concomitant]
  12. POTASSIUM [Concomitant]
  13. WARFARIN SODIUM [Concomitant]
     Dosage: TWO DAYS A WEEK
  14. WARFARIN SODIUM [Concomitant]
     Dosage: FIVE DAYS A WEEK
  15. GLIPIZIDE [Concomitant]
     Indication: DIABETES MELLITUS

REACTIONS (3)
  - BLOOD PRESSURE INCREASED [None]
  - OEDEMA PERIPHERAL [None]
  - PAIN IN EXTREMITY [None]
